FAERS Safety Report 6479569-1 (Version None)
Quarter: 2009Q4

REPORT INFORMATION
  Report Type: 
  Country: None (occurrence: None)
  Receive Date: 20091208
  Receipt Date: 20091201
  Transmission Date: 20100525
  Serious: Yes (Hospitalization)
  Sender: FDA-Public Use
  Company Number: US-JNJFOC-20091200914

PATIENT
  Age: 79 Year
  Sex: Female
  Weight: 73.48 kg

DRUGS (11)
  1. EXTRA STRENGTH TYLENOL [Suspect]
     Route: 048
  2. EXTRA STRENGTH TYLENOL [Suspect]
     Indication: MYALGIA
     Dosage: 1000 MG 1-2 TIMES PER DAY, 3 DAYS A WEEK FOR SEVERAL MONTHS
     Route: 048
  3. ASPIRIN [Concomitant]
     Indication: CARDIOVASCULAR EVENT PROPHYLAXIS
  4. LASIX [Concomitant]
     Indication: DIURETIC THERAPY
  5. PLAVIX [Concomitant]
     Indication: ARTERIOSCLEROSIS
  6. AVAPRO [Concomitant]
     Indication: HYPERTENSION
  7. TOPROL-XL [Concomitant]
     Indication: HYPERTENSION
  8. YEAST [Concomitant]
     Indication: NUTRITIONAL SUPPORT
  9. CENTRUM MULTIVITAMINS [Concomitant]
     Indication: NUTRITIONAL SUPPORT
  10. FOLIC ACID [Concomitant]
     Indication: NUTRITIONAL SUPPORT
  11. VITAMIN D [Concomitant]
     Indication: NUTRITIONAL SUPPORT

REACTIONS (3)
  - BLOOD PRESSURE DECREASED [None]
  - FALL [None]
  - PAIN IN EXTREMITY [None]
